FAERS Safety Report 15051507 (Version 3)
Quarter: 2018Q3

REPORT INFORMATION
  Report Type: Report from Study
  Country: US (occurrence: US)
  Receive Date: 20180622
  Receipt Date: 20180718
  Transmission Date: 20181010
  Serious: No
  Sender: FDA-Public Use
  Company Number: US-AMGEN-USASL2018083830

PATIENT
  Age: 44 Year
  Sex: Female

DRUGS (1)
  1. ENBREL [Suspect]
     Active Substance: ETANERCEPT
     Indication: POLYARTHRITIS
     Dosage: 50 MG, QWK
     Route: 058

REACTIONS (8)
  - Injection site haemorrhage [Unknown]
  - Injection site swelling [Unknown]
  - Drug effect decreased [Unknown]
  - Injection site pain [Unknown]
  - Injection site erythema [Unknown]
  - Injection site bruising [Unknown]
  - Injection site pruritus [Unknown]
  - Injection site warmth [Unknown]
